FAERS Safety Report 5772294-1 (Version None)
Quarter: 2008Q2

REPORT INFORMATION
  Report Type: 
  Country: None (occurrence: None)
  Receive Date: 20080613
  Receipt Date: 20080609
  Transmission Date: 20081010
  Serious: Yes (Life-Threatening, Hospitalization)
  Sender: FDA-Public Use
  Company Number: PHEH2008US04510

PATIENT
  Sex: Female
  Weight: 64.399 kg

DRUGS (6)
  1. RECLAST [Suspect]
     Indication: OSTEOPOROSIS
     Dosage: 5 MG, ONCE YEARLY
     Dates: start: 20080408
  2. CALCIUM W/VITAMIN D NOS [Suspect]
     Dosage: 1200 MG/800 U, QD
  3. GLIPIZIDE [Concomitant]
     Indication: DIABETES MELLITUS
     Dosage: 5 MG, UNK
     Route: 048
  4. METOPROLOL - SLOW RELEASE [Concomitant]
     Indication: SUPRAVENTRICULAR TACHYCARDIA
     Dosage: 12.5 MG, QD
     Route: 048
  5. LOVASTATIN [Concomitant]
     Indication: HYPERLIPIDAEMIA
     Dosage: 20 MG, QD
     Route: 048
  6. LORAZEPAM [Concomitant]
     Dosage: 0.5 MG, Q8H PRN

REACTIONS (21)
  - ANOREXIA [None]
  - ASTHENIA [None]
  - BLOOD CALCIUM DECREASED [None]
  - BLOOD CREATINE PHOSPHOKINASE INCREASED [None]
  - BLOOD CREATININE INCREASED [None]
  - BLOOD GLUCOSE INCREASED [None]
  - BLOOD UREA INCREASED [None]
  - DIARRHOEA [None]
  - FATIGUE [None]
  - HYPERCALCAEMIA [None]
  - HYPERPARATHYROIDISM [None]
  - LACTOSE INTOLERANCE [None]
  - MYALGIA [None]
  - NAUSEA [None]
  - NEPHROLITHIASIS [None]
  - PRURITUS [None]
  - RENAL ATROPHY [None]
  - RENAL FAILURE ACUTE [None]
  - RENAL HYPERTROPHY [None]
  - URINE OUTPUT INCREASED [None]
  - VOMITING [None]
